FAERS Safety Report 11827490 (Version 5)
Quarter: 2016Q1

REPORT INFORMATION
  Report Type: Spontaneous
  Country: GB (occurrence: GB)
  Receive Date: 20151211
  Receipt Date: 20160322
  Transmission Date: 20160525
  Serious: Yes (Hospitalization, Other)
  Sender: FDA-Public Use
  Company Number: GB-AMGEN-GBRSP2015128359

PATIENT
  Age: 69 Year
  Sex: Female

DRUGS (7)
  1. ONDANSETRON [Concomitant]
     Active Substance: ONDANSETRON
     Dosage: 8 MG, UNK
  2. EPIRUBICIN [Concomitant]
     Active Substance: EPIRUBICIN
     Indication: BREAST CANCER
     Dosage: UNK
  3. NEULASTA [Suspect]
     Active Substance: PEGFILGRASTIM
     Indication: PRODUCT USED FOR UNKNOWN INDICATION
     Dosage: 6 MG, UNK
     Route: 065
  4. 5 FU [Concomitant]
     Active Substance: FLUOROURACIL
     Indication: BREAST CANCER
     Dosage: UNK
  5. HERCEPTIN [Concomitant]
     Active Substance: TRASTUZUMAB
     Indication: BREAST CANCER
     Dosage: 600 MG, UNK
     Route: 058
  6. CYCLOPHOSPHAMIDE. [Concomitant]
     Active Substance: CYCLOPHOSPHAMIDE
     Indication: BREAST CANCER
     Dosage: UNK
  7. DOCETAXEL. [Concomitant]
     Active Substance: DOCETAXEL
     Dosage: 150 ML, UNK

REACTIONS (20)
  - Malaise [Recovering/Resolving]
  - Diarrhoea [Recovered/Resolved]
  - Aortic valve incompetence [Unknown]
  - Dizziness [Unknown]
  - Oral discomfort [Unknown]
  - Tremor [Unknown]
  - Heart rate irregular [Unknown]
  - Chest pain [Unknown]
  - Alopecia [Unknown]
  - Nausea [Unknown]
  - Pyrexia [Not Recovered/Not Resolved]
  - Functional gastrointestinal disorder [Unknown]
  - Dysphagia [Unknown]
  - Cystitis [Unknown]
  - Cough [Unknown]
  - Oral candidiasis [Unknown]
  - Asthenia [Unknown]
  - Chest discomfort [Unknown]
  - Oesophagitis [Unknown]
  - Dyspnoea exertional [Not Recovered/Not Resolved]

NARRATIVE: CASE EVENT DATE: 20151127
